FAERS Safety Report 9725758 (Version 1)
Quarter: 2013Q4

REPORT INFORMATION
  Report Type: Spontaneous
  Country: US (occurrence: None)
  Receive Date: 20131118
  Receipt Date: 20131118
  Transmission Date: 20140711
  Serious: Yes (Hospitalization)
  Sender: FDA-Public Use
  Company Number: US-145490

PATIENT
  Age: 54 Year
  Sex: Male

DRUGS (1)
  1. BOTULISM ANTITOXIN [Suspect]
     Indication: BOTULISM
     Dates: start: 20131028, end: 20131028

REACTIONS (5)
  - Respiratory distress [None]
  - Tracheostomy [None]
  - Oxygen saturation decreased [None]
  - Lung disorder [None]
  - Respiratory failure [None]
